FAERS Safety Report 16556659 (Version 1)
Quarter: 2019Q3

REPORT INFORMATION
  Report Type: Spontaneous
  Country: DE (occurrence: DE)
  Receive Date: 20190711
  Receipt Date: 20190711
  Transmission Date: 20191004
  Serious: Yes (Other)
  Sender: FDA-Public Use
  Company Number: DE-ASTRAZENECA-2019SE97565

PATIENT
  Age: 75 Year
  Sex: Male
  Weight: 94 kg

DRUGS (5)
  1. ENALAPRIL PLUS 1A PHARMA [Concomitant]
  2. VELMETIA [Concomitant]
     Active Substance: METFORMIN\SITAGLIPTIN
     Dosage: 1 DF, 1-0-1-0
  3. BISOPROLOL [Concomitant]
     Active Substance: BISOPROLOL
  4. SIMVA-ARISTO [Concomitant]
     Active Substance: SIMVASTATIN
  5. FORXIGA [Suspect]
     Active Substance: DAPAGLIFLOZIN
     Indication: DIABETES MELLITUS
     Route: 048
     Dates: start: 20190412, end: 20190617

REACTIONS (1)
  - Transaminases increased [Recovering/Resolving]

NARRATIVE: CASE EVENT DATE: 20190617
